FAERS Safety Report 5572600-7 (Version None)
Quarter: 2007Q4

REPORT INFORMATION
  Report Type: 
  Country: None (occurrence: None)
  Receive Date: 20071130
  Receipt Date: 20070223
  Transmission Date: 20080405
  Serious: Yes (Disabling, Other)
  Sender: FDA-Public Use
  Company Number: WAES 0507USA03981

PATIENT
  Age: 76 Year
  Sex: Female
  Weight: 67.586 kg

DRUGS (9)
  1. FOSAMAX [Suspect]
     Indication: OSTEOPOROSIS
     Dosage: 70 MG WKY PO
     Route: 048
     Dates: start: 20000101, end: 20041101
  2. CALTRATE [Concomitant]
  3. MOBIC [Concomitant]
  4. VIOXX [Concomitant]
  5. ZOCOR [Concomitant]
  6. DOCUSATE SODIUM [Concomitant]
  7. GASTROINTESTINAL PREPARATIONS [Concomitant]
  8. VITAMINS [Concomitant]
  9. ZOLPIDEM TARTRATE [Concomitant]

REACTIONS (2)
  - GINGIVAL ULCERATION [None]
  - OSTEONECROSIS [None]
